FAERS Safety Report 20311758 (Version 1)
Quarter: 2022Q1

REPORT INFORMATION
  Report Type: Spontaneous
  Country: US (occurrence: US)
  Receive Date: 20220108
  Receipt Date: 20220108
  Transmission Date: 20220423
  Serious: Yes (Death, Other)
  Sender: FDA-Public Use
  Company Number: US-AMGEN-USASP2022001552

PATIENT

DRUGS (1)
  1. BLINATUMOMAB [Suspect]
     Active Substance: BLINATUMOMAB
     Indication: B precursor type acute leukaemia
     Dosage: UNK
     Route: 065

REACTIONS (14)
  - Death [Fatal]
  - Pneumonia [Fatal]
  - Pancytopenia [Unknown]
  - Gastrointestinal haemorrhage [Unknown]
  - Pericarditis [Unknown]
  - Myocarditis [Unknown]
  - Subdural haemorrhage [Unknown]
  - Febrile neutropenia [Unknown]
  - Sepsis [Unknown]
  - Cellulitis [Unknown]
  - Disease progression [Unknown]
  - Infection [Unknown]
  - Mediastinal mass [Unknown]
  - Therapy non-responder [Unknown]
